FAERS Safety Report 5741428-7 (Version None)
Quarter: 2008Q2

REPORT INFORMATION
  Report Type: 
  Country: None (occurrence: None)
  Receive Date: 20080514
  Receipt Date: 20080507
  Transmission Date: 20081010
  Serious: Yes (Hospitalization)
  Sender: FDA-Public Use
  Company Number: 100#08#2008-02388

PATIENT
  Age: 68 Year
  Sex: Female

DRUGS (2)
  1. CARVEDILOL [Suspect]
     Indication: DRUG USE FOR UNKNOWN INDICATION
  2. DOBUTAMINE (DOBUTAMINE) [Suspect]
     Indication: MYOCARDIAL INFARCTION
     Dosage: 2 MICROGRAM/KG/MIN : 10 MICROGRAM/KG/MIN

REACTIONS (10)
  - CEREBRAL ARTERY THROMBOSIS [None]
  - CORONARY ARTERY OCCLUSION [None]
  - CORONARY ARTERY STENOSIS [None]
  - DRUG INTERACTION [None]
  - EJECTION FRACTION DECREASED [None]
  - HYPOTENSION [None]
  - MENTAL STATUS CHANGES [None]
  - REFUSAL OF TREATMENT BY PATIENT [None]
  - RESPIRATORY DISORDER [None]
  - SOMNOLENCE [None]
